FAERS Safety Report 6142513-0 (Version None)
Quarter: 2009Q2

REPORT INFORMATION
  Report Type: 
  Country: None (occurrence: None)
  Receive Date: 20090401
  Receipt Date: 20090401
  Transmission Date: 20091009
  Serious: No
  Sender: FDA-Public Use
  Company Number: None

PATIENT
  Age: 60 Year
  Sex: Female
  Weight: 68.0396 kg

DRUGS (2)
  1. EFFEXOR XR [Suspect]
     Indication: ANXIETY
     Dosage: EVERY DAY
  2. EFFEXOR XR [Suspect]
     Indication: PANIC DISORDER
     Dosage: EVERY DAY

REACTIONS (7)
  - CONFUSIONAL STATE [None]
  - DRUG DEPENDENCE [None]
  - DRUG DOSE OMISSION [None]
  - IMPAIRED WORK ABILITY [None]
  - MENTAL DISORDER [None]
  - NIGHTMARE [None]
  - THINKING ABNORMAL [None]
